FAERS Safety Report 13388620 (Version 1)
Quarter: 2017Q1

REPORT INFORMATION
  Report Type: Report from Study
  Country: CA (occurrence: CA)
  Receive Date: 20170330
  Receipt Date: 20170330
  Transmission Date: 20170429
  Serious: Yes (Other)
  Sender: FDA-Public Use
  Company Number: CA-GLAXOSMITHKLINE-CA2016GSK170199

PATIENT
  Age: 58 Year
  Sex: Male

DRUGS (15)
  1. PREDNISONE. [Concomitant]
     Active Substance: PREDNISONE
  2. OTEZLA [Concomitant]
     Active Substance: APREMILAST
  3. VITAMIN B [Concomitant]
     Active Substance: VITAMIN B
  4. NAPROXEN. [Concomitant]
     Active Substance: NAPROXEN
  5. IBUPROFEN. [Concomitant]
     Active Substance: IBUPROFEN
  6. COSENTYX [Suspect]
     Active Substance: SECUKINUMAB
     Dosage: 300 MG, QMO
     Dates: start: 20161212
  7. METHOTREXATE. [Suspect]
     Active Substance: METHOTREXATE
     Indication: PRODUCT USED FOR UNKNOWN INDICATION
  8. COSENTYX [Suspect]
     Active Substance: SECUKINUMAB
     Dosage: 300 MG, QMO
     Dates: start: 20170212
  9. CALCIPOTRIENE AND BETAMETHASONE [Concomitant]
  10. DICLOFENAC SODIUM. [Suspect]
     Active Substance: DICLOFENAC SODIUM
     Indication: PRODUCT USED FOR UNKNOWN INDICATION
  11. STATEX (MORPHIN) [Concomitant]
  12. COSENTYX [Suspect]
     Active Substance: SECUKINUMAB
     Indication: PSORIATIC ARTHROPATHY
     Dosage: 300 MG, WE
     Route: 058
     Dates: start: 20161114
  13. COSENTYX [Suspect]
     Active Substance: SECUKINUMAB
     Dosage: 300 MG, WE
     Dates: start: 20161205
  14. CELEBREX [Concomitant]
     Active Substance: CELECOXIB
  15. CALCIUM [Concomitant]
     Active Substance: CALCIUM

REACTIONS (11)
  - Energy increased [Unknown]
  - Nasal congestion [Unknown]
  - Gait disturbance [Unknown]
  - Blood pressure decreased [Unknown]
  - Psoriatic arthropathy [Unknown]
  - Pruritus [Unknown]
  - Headache [Unknown]
  - Feeling abnormal [Unknown]
  - Psoriasis [Unknown]
  - Fatigue [Unknown]
  - Skin irritation [Unknown]

NARRATIVE: CASE EVENT DATE: 20161114
